FAERS Safety Report 17514476 (Version 4)
Quarter: 2020Q4

REPORT INFORMATION
  Report Type: Report from Study
  Country: CA (occurrence: CA)
  Receive Date: 20200309
  Receipt Date: 20201009
  Transmission Date: 20210113
  Serious: Yes (Other)
  Sender: FDA-Public Use
  Company Number: CA-EMD SERONO-9149691

PATIENT
  Sex: Female

DRUGS (1)
  1. REBIF [Suspect]
     Active Substance: INTERFERON BETA-1A
     Indication: MULTIPLE SCLEROSIS
     Route: 058
     Dates: start: 20190715

REACTIONS (11)
  - Rash [Not Recovered/Not Resolved]
  - Heart rate increased [Recovering/Resolving]
  - Gastrooesophageal reflux disease [Unknown]
  - Cellulitis [Not Recovered/Not Resolved]
  - Dehydration [Unknown]
  - Influenza like illness [Unknown]
  - Malaise [Unknown]
  - Hiatus hernia [Unknown]
  - Clostridium difficile infection [Unknown]
  - Autoimmune disorder [Not Recovered/Not Resolved]
  - Herpes zoster [Unknown]
